FAERS Safety Report 19967647 (Version 1)
Quarter: 2021Q4

REPORT INFORMATION
  Report Type: Spontaneous
  Country: US (occurrence: US)
  Receive Date: 20211018
  Receipt Date: 20211018
  Transmission Date: 20220303
  Serious: Yes (Hospitalization)
  Sender: FDA-Public Use
  Company Number: None

PATIENT
  Age: 57 Year
  Sex: Female

DRUGS (1)
  1. NUCALA [Suspect]
     Active Substance: MEPOLIZUMAB
     Indication: Asthma
     Dosage: ?          OTHER FREQUENCY:Q4WKS;
     Route: 058
     Dates: start: 20210519

REACTIONS (2)
  - Bronchitis [None]
  - Condition aggravated [None]

NARRATIVE: CASE EVENT DATE: 20210918
